FAERS Safety Report 16685035 (Version 2)
Quarter: 2019Q3

REPORT INFORMATION
  Report Type: Report from Study
  Country: US (occurrence: US)
  Receive Date: 20190808
  Receipt Date: 20190820
  Transmission Date: 20191004
  Serious: Yes (Death, Hospitalization, Other)
  Sender: FDA-Public Use
  Company Number: US-GILEAD-2019-0420120

PATIENT
  Age: 75 Year
  Sex: Male

DRUGS (1)
  1. IDELALISIB [Suspect]
     Active Substance: IDELALISIB
     Indication: CHRONIC LYMPHOCYTIC LEUKAEMIA
     Dosage: 150 MG, BID
     Route: 048
     Dates: start: 20150319

REACTIONS (8)
  - Cellulitis [Unknown]
  - Sepsis [Unknown]
  - Weight decreased [Unknown]
  - Laboratory test abnormal [Unknown]
  - Localised infection [Unknown]
  - Malaise [Unknown]
  - Death [Fatal]
  - White blood cell disorder [Unknown]

NARRATIVE: CASE EVENT DATE: 20190814
